FAERS Safety Report 7297689-9 (Version None)
Quarter: 2011Q1

REPORT INFORMATION
  Report Type: 
  Country: None (occurrence: None)
  Receive Date: 20110216
  Receipt Date: 20110210
  Transmission Date: 20110831
  Serious: Yes (Other)
  Sender: FDA-Public Use
  Company Number: AU-BRISTOL-MYERS SQUIBB COMPANY-15454721

PATIENT
  Age: 33 Year
  Sex: Female

DRUGS (3)
  1. METHOTREXATE [Suspect]
     Indication: PSORIASIS
     Dosage: REOMMENCED IN DEC2010
     Route: 048
  2. ISOTRETINOIN [Suspect]
     Indication: ACNE
     Dosage: CAPSULE
     Route: 048
  3. HYDROXYUREA [Suspect]

REACTIONS (3)
  - LIVER FUNCTION TEST ABNORMAL [None]
  - DEPRESSION [None]
  - PSORIASIS [None]
